FAERS Safety Report 16240882 (Version 2)
Quarter: 2019Q4

REPORT INFORMATION
  Report Type: Spontaneous
  Country: US (occurrence: US)
  Receive Date: 20190425
  Receipt Date: 20191029
  Transmission Date: 20200122
  Serious: Yes (Other)
  Sender: FDA-Public Use
  Company Number: US-ASTRAZENECA-2018SF47949

PATIENT
  Sex: Male

DRUGS (16)
  1. LIPITOR [Concomitant]
     Active Substance: ATORVASTATIN CALCIUM
  2. WARFARIN SOD [Concomitant]
     Active Substance: WARFARIN SODIUM
  3. LEVOFLOXACIN. [Concomitant]
     Active Substance: LEVOFLOXACIN
  4. MAGNESIUM OXIDE. [Concomitant]
     Active Substance: MAGNESIUM OXIDE
  5. METOPROLOL. [Concomitant]
     Active Substance: METOPROLOL
  6. POTASSIUM CHLORIDE. [Concomitant]
     Active Substance: POTASSIUM CHLORIDE
  7. METHOCARBAMOL. [Concomitant]
     Active Substance: METHOCARBAMOL
  8. MORPHINE [Concomitant]
     Active Substance: MORPHINE
  9. ASPIRIN. [Concomitant]
     Active Substance: ASPIRIN
  10. FUROSEMIDE. [Concomitant]
     Active Substance: FUROSEMIDE
  11. WARFARIN [Concomitant]
     Active Substance: WARFARIN
  12. NEXIUM [Suspect]
     Active Substance: ESOMEPRAZOLE MAGNESIUM
     Route: 048
  13. AZITHROMYCIN ANHYDROUS. [Concomitant]
     Active Substance: AZITHROMYCIN ANHYDROUS
  14. GLIMEPIRIDE. [Concomitant]
     Active Substance: GLIMEPIRIDE
  15. KETOPROFEN. [Concomitant]
     Active Substance: KETOPROFEN
  16. LISINOPRIL. [Concomitant]
     Active Substance: LISINOPRIL

REACTIONS (4)
  - Acute kidney injury [Unknown]
  - Chronic kidney disease [Unknown]
  - Rebound acid hypersecretion [Unknown]
  - Renal failure [Unknown]
